FAERS Safety Report 12993268 (Version 1)
Quarter: 2016Q4

REPORT INFORMATION
  Report Type: Spontaneous
  Country: US (occurrence: US)
  Receive Date: 20161202
  Receipt Date: 20161202
  Transmission Date: 20170207
  Serious: Yes (Other)
  Sender: FDA-Public Use
  Company Number: US-INDICUS PHARMA-000465

PATIENT
  Age: 46 Year
  Sex: Female

DRUGS (1)
  1. METFORMIN [Suspect]
     Active Substance: METFORMIN HYDROCHLORIDE
     Indication: HYPERGLYCAEMIA
     Dosage: RECEIVED 500 MG BID FOR TYPE 2 DIABETES MELLITUS AND INCREASED TO 850 MG BID

REACTIONS (1)
  - Cholestatic liver injury [Recovering/Resolving]
